FAERS Safety Report 6638459-1 (Version None)
Quarter: 2010Q1

REPORT INFORMATION
  Report Type: 
  Country: None (occurrence: None)
  Receive Date: 20100312
  Receipt Date: 20100304
  Transmission Date: 20100710
  Serious: Yes (Hospitalization)
  Sender: FDA-Public Use
  Company Number: 96321

PATIENT
  Age: 36 Year
  Sex: Male

DRUGS (2)
  1. CISPLATIN [Suspect]
     Indication: TESTIS CANCER
     Dosage: 20MG/M2/DAY FOR 5 DAYS
  2. ETOPOSIDE [Suspect]
     Indication: TESTIS CANCER
     Dosage: 100MG/M2/DAY FOR 5 DAYS

REACTIONS (5)
  - ARTERIAL THROMBOSIS [None]
  - OEDEMA PERIPHERAL [None]
  - PAIN IN EXTREMITY [None]
  - PALLOR [None]
  - SENSORY LOSS [None]
